FAERS Safety Report 6444980-1 (Version None)
Quarter: 2009Q4

REPORT INFORMATION
  Report Type: 
  Country: None (occurrence: None)
  Receive Date: 20091117
  Receipt Date: 20091117
  Transmission Date: 20100525
  Serious: No
  Sender: FDA-Public Use
  Company Number: None

PATIENT
  Sex: Female
  Weight: 61.3 kg

DRUGS (5)
  1. MEMANTINE HCL [Suspect]
     Dosage: 70 MG
  2. ATIVAN [Concomitant]
  3. DARVOCET [Concomitant]
  4. DECADRON [Concomitant]
  5. PRILOSEC [Concomitant]

REACTIONS (4)
  - ACTIVITIES OF DAILY LIVING IMPAIRED [None]
  - DEHYDRATION [None]
  - FATIGUE [None]
  - LETHARGY [None]
